FAERS Safety Report 24032781 (Version 1)
Quarter: 2024Q3

REPORT INFORMATION
  Report Type: Spontaneous
  Country: IL (occurrence: IL)
  Receive Date: 20240701
  Receipt Date: 20240701
  Transmission Date: 20241016
  Serious: Yes (Other)
  Sender: NOVITIUM PHARMA
  Company Number: IL-NOVITIUMPHARMA-2024ILNVP01121

PATIENT
  Age: 34 Year
  Sex: Female

DRUGS (1)
  1. PREDNISONE [Suspect]
     Active Substance: PREDNISONE
     Indication: Autoimmune hepatitis
     Route: 048

REACTIONS (1)
  - Oesophageal candidiasis [Unknown]
